FAERS Safety Report 13156869 (Version 2)
Quarter: 2017Q1

REPORT INFORMATION
  Report Type: Spontaneous
  Country: IT (occurrence: IT)
  Receive Date: 20170127
  Receipt Date: 20170205
  Transmission Date: 20170428
  Serious: Yes (Other)
  Sender: FDA-Public Use
  Company Number: IT-ROCHE-1884272

PATIENT
  Age: 45 Year
  Sex: Female

DRUGS (4)
  1. ROACTEMRA [Suspect]
     Active Substance: TOCILIZUMAB
     Indication: RHEUMATOID ARTHRITIS
     Route: 042
     Dates: start: 20140729, end: 20140923
  2. METHOTREXATE (METHOTREXATE SODIUM) [Concomitant]
     Active Substance: METHOTREXATE SODIUM
     Route: 058
  3. LODOTRA [Concomitant]
     Active Substance: PREDNISONE
     Route: 048
  4. FOLINA (ITALY) [Concomitant]
     Dosage: ^5 MG SOFT CAPSULES^ 20 CAPSULES
     Route: 048

REACTIONS (3)
  - Feeling abnormal [Recovered/Resolved]
  - Peripheral swelling [Recovered/Resolved]
  - Dysphagia [Recovered/Resolved]

NARRATIVE: CASE EVENT DATE: 20140923
